FAERS Safety Report 8828136 (Version 1)
Quarter: 2012Q4

REPORT INFORMATION
  Report Type: 
  Country: US (occurrence: US)
  Receive Date: 20121005
  Receipt Date: 20121005
  Transmission Date: 20130627
  Serious: No
  Sender: FDA-Public Use
  Company Number: US-PFIZER INC-2012242770

PATIENT
  Age: 54 Year
  Sex: Male

DRUGS (1)
  1. SUTENT [Suspect]
     Indication: NEOPLASM MALIGNANT
     Dosage: 37.5 mg once daily (12.5mg, 3 caps daily)
     Dates: start: 20120106

REACTIONS (2)
  - Disease progression [Unknown]
  - Neoplasm malignant [Unknown]
